FAERS Safety Report 19194426 (Version 2)
Quarter: 2021Q2

REPORT INFORMATION
  Report Type: Spontaneous
  Country: US (occurrence: US)
  Receive Date: 20210429
  Receipt Date: 20210519
  Transmission Date: 20210717
  Serious: Yes (Hospitalization, Other)
  Sender: FDA-Public Use
  Company Number: US-PFIZER INC-2021422202

PATIENT
  Age: 10 Year
  Sex: Female
  Weight: 35 kg

DRUGS (12)
  1. GUANFACINE. [Concomitant]
     Active Substance: GUANFACINE
     Dosage: UNK
  2. LASIX [Concomitant]
     Active Substance: FUROSEMIDE
     Dosage: UNK
  3. ORENITRAM [Suspect]
     Active Substance: TREPROSTINIL
     Indication: PULMONARY ARTERIAL HYPERTENSION
     Dosage: 5 MG, EVERY 8 HOURS (Q8H)
     Route: 048
     Dates: start: 20210303
  4. FEROSUL [Concomitant]
     Active Substance: FERROUS SULFATE
     Dosage: UNK
  5. ONDANSETRON [Concomitant]
     Active Substance: ONDANSETRON
     Dosage: UNK
  6. SILDENAFIL CITRATE. [Suspect]
     Active Substance: SILDENAFIL CITRATE
     Indication: PORTAL HYPERTENSION
     Dosage: 20 MG, 3X/DAY
     Dates: start: 20190425
  7. AMBRISENTAN [Suspect]
     Active Substance: AMBRISENTAN
     Indication: PULMONARY HYPERTENSION
  8. CYPROHEPTADINE. [Concomitant]
     Active Substance: CYPROHEPTADINE
     Dosage: UNK
  9. ORENITRAM [Suspect]
     Active Substance: TREPROSTINIL
     Dosage: UNK
     Route: 048
  10. REMODULIN [Suspect]
     Active Substance: TREPROSTINIL
     Indication: PULMONARY ARTERIAL HYPERTENSION
     Dosage: UNK
     Route: 058
  11. AMBRISENTAN [Suspect]
     Active Substance: AMBRISENTAN
     Indication: PORTAL HYPERTENSION
     Dosage: 5 MG, 1X/DAY (QD)
     Dates: start: 20190423
  12. OMEPRAZOLE. [Concomitant]
     Active Substance: OMEPRAZOLE
     Dosage: UNK

REACTIONS (20)
  - Abdominal pain [Unknown]
  - Hepatic failure [Unknown]
  - Vomiting [Unknown]
  - Ascites [Unknown]
  - Pain [Not Recovered/Not Resolved]
  - Arthralgia [Unknown]
  - Off label use [Unknown]
  - Eye swelling [Unknown]
  - Nausea [Unknown]
  - Pain in extremity [Unknown]
  - Staphylococcal bacteraemia [Unknown]
  - Eye pain [Unknown]
  - Headache [Unknown]
  - Endocarditis [Unknown]
  - Diarrhoea [Unknown]
  - Fatigue [Unknown]
  - Back pain [Unknown]
  - Oedema [Unknown]
  - Eye contusion [Unknown]
  - Dehydration [Unknown]

NARRATIVE: CASE EVENT DATE: 20190423
